FAERS Safety Report 16230806 (Version 1)
Quarter: 2019Q2

REPORT INFORMATION
  Report Type: Spontaneous
  Country: FR (occurrence: FR)
  Receive Date: 20190423
  Receipt Date: 20190423
  Transmission Date: 20190711
  Serious: Yes (Hospitalization)
  Sender: FDA-Public Use
  Company Number: FR-GILEAD-2019-0403652

PATIENT
  Age: 75 Year
  Sex: Female
  Weight: 35 kg

DRUGS (1)
  1. ZYDELIG [Suspect]
     Active Substance: IDELALISIB
     Indication: WALDENSTROM^S MACROGLOBULINAEMIA
     Dosage: 2 DOSAGE FORM, QD
     Route: 048
     Dates: start: 20190204, end: 20190207

REACTIONS (2)
  - Diarrhoea [Recovered/Resolved]
  - Dysphagia [Recovered/Resolved]

NARRATIVE: CASE EVENT DATE: 20190207
